FAERS Safety Report 16768144 (Version 3)
Quarter: 2019Q3

REPORT INFORMATION
  Report Type: Report from Study
  Country: None (occurrence: NL)
  Receive Date: 20190903
  Receipt Date: 20190919
  Transmission Date: 20191005
  Serious: Yes (Hospitalization, Other)
  Sender: FDA-Public Use
  Company Number: NL-ABBVIE-19P-114-2903412-00

PATIENT
  Age: 82 Year
  Sex: Female
  Weight: 64 kg

DRUGS (20)
  1. ABBV-621 [Suspect]
     Active Substance: EFTOZANERMIN ALFA
     Indication: HAEMATOLOGICAL MALIGNANCY
     Dosage: DAY 1 AND 8 OF 21 DAY CYCLE
     Route: 042
     Dates: start: 20190813, end: 20190813
  2. ABBV-621 [Suspect]
     Active Substance: EFTOZANERMIN ALFA
     Indication: NEOPLASM
  3. NORMAL SALINE [Concomitant]
     Active Substance: SODIUM CHLORIDE
     Indication: RESPIRATORY DISORDER
     Route: 042
     Dates: start: 20190815, end: 20190819
  4. CALCIUM/VIT D3 [Concomitant]
     Indication: MINERAL SUPPLEMENTATION
     Route: 048
     Dates: start: 20190812
  5. LANOXIN [Concomitant]
     Active Substance: DIGOXIN
     Indication: ATRIAL FIBRILLATION
     Route: 048
     Dates: start: 20190818, end: 20190820
  6. OROSOL COLLUTIO CHLOROHEXIDINE [Concomitant]
     Indication: INFECTION PROPHYLAXIS
     Route: 002
     Dates: start: 20190823
  7. VENETOCLAX. [Suspect]
     Active Substance: VENETOCLAX
     Indication: HAEMATOLOGICAL MALIGNANCY
     Route: 048
     Dates: start: 20190815, end: 20190815
  8. VENETOCLAX. [Suspect]
     Active Substance: VENETOCLAX
     Route: 048
     Dates: start: 20190816, end: 20190816
  9. NORMAL SALINE [Concomitant]
     Active Substance: SODIUM CHLORIDE
     Indication: PROPHYLAXIS
     Route: 042
     Dates: start: 20190813, end: 20190813
  10. TEMAZEPAM. [Concomitant]
     Active Substance: TEMAZEPAM
     Indication: INSOMNIA
     Route: 048
     Dates: start: 20190218
  11. VITAMIN B12 COMPLEX BIOVITAAL [Concomitant]
     Indication: OSTEOPOROSIS
     Route: 048
     Dates: start: 20190812
  12. METOPROLOL. [Concomitant]
     Active Substance: METOPROLOL
     Indication: ATRIAL FIBRILLATION
     Route: 048
     Dates: start: 20190819
  13. VENETOCLAX. [Suspect]
     Active Substance: VENETOCLAX
     Indication: NEOPLASM
     Route: 048
     Dates: start: 20190814, end: 20190814
  14. VENETOCLAX. [Suspect]
     Active Substance: VENETOCLAX
     Route: 048
     Dates: start: 20190817, end: 20190818
  15. NITROGLYCERIN SPRAY [Concomitant]
     Active Substance: NITROGLYCERIN
     Indication: ATRIAL FIBRILLATION
     Route: 060
     Dates: start: 20190818, end: 20190823
  16. NADROPARINE [Concomitant]
     Active Substance: NADROPARIN
     Indication: ANTICOAGULANT THERAPY
     Route: 058
     Dates: start: 20190818, end: 20190819
  17. NADROPARINE [Concomitant]
     Active Substance: NADROPARIN
     Route: 058
     Dates: start: 20190822, end: 20190826
  18. ALLOPURINOL. [Concomitant]
     Active Substance: ALLOPURINOL
     Indication: PROPHYLAXIS
     Route: 048
     Dates: start: 20190812, end: 20190827
  19. NORMAL SALINE [Concomitant]
     Active Substance: SODIUM CHLORIDE
     Route: 045
     Dates: start: 20190818, end: 20190824
  20. NADROPARINE [Concomitant]
     Active Substance: NADROPARIN
     Route: 058
     Dates: start: 20190819, end: 20190821

REACTIONS (2)
  - Pericardial effusion [Recovered/Resolved]
  - Lung infection [Recovered/Resolved]

NARRATIVE: CASE EVENT DATE: 20190819
